FAERS Safety Report 7121546-1 (Version None)
Quarter: 2010Q4

REPORT INFORMATION
  Report Type: 
  Country: None (occurrence: None)
  Receive Date: 20101124
  Receipt Date: 20101119
  Transmission Date: 20110411
  Serious: Yes (Other)
  Sender: FDA-Public Use
  Company Number: JP-ABBOTT-10P-087-0686542-00

PATIENT
  Sex: Female

DRUGS (2)
  1. CALCITRIOL [Suspect]
     Indication: PRODUCT USED FOR UNKNOWN INDICATION
  2. CALCITRIOL [Suspect]

REACTIONS (1)
  - NEPHROLITHIASIS [None]
